FAERS Safety Report 8277159-1 (Version None)
Quarter: 2012Q2

REPORT INFORMATION
  Report Type: 
  Country: None (occurrence: None)
  Receive Date: 20120412
  Receipt Date: 20120404
  Transmission Date: 20120825
  Serious: Yes (Other)
  Sender: FDA-Public Use
  Company Number: US-PFIZER INC-2012086427

PATIENT
  Sex: Female

DRUGS (3)
  1. XALATAN [Suspect]
     Indication: GLAUCOMA
     Dosage: 0.005 %, UNK (1 DROP EACH EYE AT NIGHT) DAILY
     Route: 047
  2. ALPHAGAN [Suspect]
     Indication: GLAUCOMA
     Dosage: UNK (DAILY)
  3. TRUSOPT [Suspect]
     Indication: GLAUCOMA
     Dosage: UNK (DAILY)

REACTIONS (4)
  - APHAKIA [None]
  - NYSTAGMUS [None]
  - SIGHT DISABILITY [None]
  - GLAUCOMA [None]
